FAERS Safety Report 13293954 (Version 1)
Quarter: 2017Q1

REPORT INFORMATION
  Report Type: Spontaneous
  Country: CH (occurrence: CH)
  Receive Date: 20170303
  Receipt Date: 20170303
  Transmission Date: 20170428
  Serious: Yes (Other)
  Sender: FDA-Public Use
  Company Number: CH-NAPPMUNDI-DEU-2017-0018585

PATIENT
  Sex: Male

DRUGS (2)
  1. TARGIN [Suspect]
     Active Substance: NALOXONE HYDROCHLORIDE\OXYCODONE HYDROCHLORIDE
     Indication: PRODUCT USED FOR UNKNOWN INDICATION
     Dosage: 10/5 MG, DAILY
     Route: 065
     Dates: start: 20170204
  2. TARGIN [Suspect]
     Active Substance: NALOXONE HYDROCHLORIDE\OXYCODONE HYDROCHLORIDE
     Dosage: 20/10 MG, DAILY
     Route: 065
     Dates: end: 20170203

REACTIONS (4)
  - Hypotension [Unknown]
  - Intellectual disability [Unknown]
  - Muscle twitching [Unknown]
  - Vomiting [Unknown]

NARRATIVE: CASE EVENT DATE: 20170204
